FAERS Safety Report 6183025-8 (Version None)
Quarter: 2009Q2

REPORT INFORMATION
  Report Type: 
  Country: None (occurrence: None)
  Receive Date: 20090505
  Receipt Date: 20090421
  Transmission Date: 20091009
  Serious: Yes (Death, Hospitalization)
  Sender: FDA-Public Use
  Company Number: B0572399A

PATIENT
  Age: 67 Year

DRUGS (16)
  1. PREDNISOLONE [Suspect]
     Indication: NON-HODGKIN'S LYMPHOMA
  2. MELPHALAN (FORMULATION UNKNOWN) (GENERIC) (MELPHALAN) [Suspect]
     Indication: NON-HODGKIN'S LYMPHOMA
  3. RADIOTHERAPY (FORMULATION UNKNOWN) (RADIOTHERAPY) [Suspect]
     Indication: NON-HODGKIN'S LYMPHOMA
  4. RITUXIMAB (FORMULATION UNKNOWN) [Suspect]
     Indication: NON-HODGKIN'S LYMPHOMA
     Dosage: NON-HODGKIN'S LYMPHOMA
  5. CYCLOPHOSPHAMIDE [Suspect]
     Indication: NON-HODGKIN'S LYMPHOMA
  6. DOXORUBICIN HCL [Suspect]
     Indication: NON-HODGKIN'S LYMPHOMA
  7. VINCRISTINE [Suspect]
     Indication: NON-HODGKIN'S LYMPHOMA
  8. CYTARABINE [Suspect]
     Indication: NON-HODGKIN'S LYMPHOMA
  9. CISPLATIN [Suspect]
     Indication: NON-HODGKIN'S LYMPHOMA
  10. DEXAMETHASONE [Suspect]
     Indication: NON-HODGKIN'S LYMPHOMA
  11. METHOTREXATE [Suspect]
     Indication: NON-HODGKIN'S LYMPHOMA
  12. ETOPOSIDE [Suspect]
     Indication: NON-HODGKIN'S LYMPHOMA
  13. CARMUSTINE [Suspect]
     Indication: NON-HODGKIN'S LYMPHOMA
  14. PREDNISONE (FORMULATION UNKNOWN) (PREDNISONE) [Suspect]
     Indication: NON-HODGKIN'S LYMPHOMA
  15. CYTARABINE [Suspect]
     Indication: NON-HODGKIN'S LYMPHOMA
  16. METRONIDAZOLE [Concomitant]

REACTIONS (8)
  - ANAEMIA [None]
  - BLOOD IRON DECREASED [None]
  - CLOSTRIDIUM DIFFICILE COLITIS [None]
  - GAS GANGRENE [None]
  - LEUKOPENIA [None]
  - PAIN IN EXTREMITY [None]
  - SEPTIC SHOCK [None]
  - STAPHYLOCOCCAL INFECTION [None]
